APPROVED DRUG PRODUCT: DARICON
Active Ingredient: OXYPHENCYCLIMINE HYDROCHLORIDE
Strength: 10MG
Dosage Form/Route: TABLET;ORAL
Application: N011612 | Product #001
Applicant: PFIZER LABORATORIES DIV PFIZER INC
Approved: Approved Prior to Jan 1, 1982 | RLD: No | RS: No | Type: DISCN